FAERS Safety Report 19070201 (Version 1)
Quarter: 2021Q1

REPORT INFORMATION
  Report Type: Report from Study
  Country: JP (occurrence: JP)
  Receive Date: 20210329
  Receipt Date: 20210329
  Transmission Date: 20210420
  Serious: Yes (Hospitalization)
  Sender: FDA-Public Use
  Company Number: JP-INCYTE CORPORATION-2017IN007388

PATIENT

DRUGS (3)
  1. JAKAVI [Suspect]
     Active Substance: RUXOLITINIB
     Indication: POLYCYTHAEMIA VERA
     Dosage: 20 MG, BID
     Route: 048
     Dates: start: 20170203, end: 20170815
  2. RED BLOOD CELLS, CONCENTRATED [Concomitant]
     Active Substance: HUMAN RED BLOOD CELL
     Indication: ANAEMIA
  3. RED BLOOD CELLS, CONCENTRATED [Concomitant]
     Active Substance: HUMAN RED BLOOD CELL
     Indication: POLYCYTHAEMIA VERA
     Dosage: UNK
     Route: 065

REACTIONS (5)
  - Anaemia [Recovering/Resolving]
  - Anaemia [Recovering/Resolving]
  - Haemoglobin decreased [Unknown]
  - Haemorrhage subcutaneous [Recovered/Resolved]
  - Chest wall haematoma [Recovered/Resolved]

NARRATIVE: CASE EVENT DATE: 20170316
